FAERS Safety Report 7214791-8 (Version None)
Quarter: 2011Q1

REPORT INFORMATION
  Report Type: 
  Country: None (occurrence: None)
  Receive Date: 20110107
  Receipt Date: 20100225
  Transmission Date: 20110831
  Serious: No
  Sender: FDA-Public Use
  Company Number: A0846682A

PATIENT
  Age: 68 Year
  Sex: Female

DRUGS (4)
  1. PRILOSEC [Concomitant]
  2. DYAZIDE [Concomitant]
  3. LOVAZA [Suspect]
     Dosage: 1CAPL PER DAY
     Route: 048
     Dates: start: 20090101
  4. ZOCOR [Concomitant]

REACTIONS (1)
  - URINE ODOUR ABNORMAL [None]
